FAERS Safety Report 9305567 (Version 1)
Quarter: 2013Q2

REPORT INFORMATION
  Report Type: Spontaneous
  Country: US (occurrence: None)
  Receive Date: 20130520
  Receipt Date: 20130520
  Transmission Date: 20140414
  Serious: Yes (Hospitalization, Other)
  Sender: FDA-Public Use
  Company Number: DAV-AE-CLO-13-03

PATIENT
  Age: 52 Year
  Sex: Male

DRUGS (5)
  1. CLONIDINE [Suspect]
     Indication: HYPERTENSION
  2. FERROUS SULFIDE [Concomitant]
  3. HYDRALAZINE [Concomitant]
  4. AMLODIPINE [Concomitant]
  5. LACTULOSE [Concomitant]

REACTIONS (4)
  - Gastrointestinal tract mucosal pigmentation [None]
  - Gastrointestinal tract mucosal pigmentation [None]
  - Ileus [None]
  - Normochromic normocytic anaemia [None]
